FAERS Safety Report 7784592-0 (Version None)
Quarter: 2011Q3

REPORT INFORMATION
  Report Type: 
  Country: None (occurrence: None)
  Receive Date: 20110928
  Receipt Date: 20110913
  Transmission Date: 20111222
  Serious: Yes (Other)
  Sender: FDA-Public Use
  Company Number: US-SANOFI-AVENTIS-2011SA062798

PATIENT
  Age: 84 Year
  Sex: Male

DRUGS (2)
  1. OPTICLICK [Suspect]
  2. LANTUS [Suspect]
     Dosage: DOSE:6 UNIT(S)
     Route: 058

REACTIONS (3)
  - JOINT INJURY [None]
  - FALL [None]
  - LIMB INJURY [None]
